FAERS Safety Report 19826714 (Version 1)
Quarter: 2021Q3

REPORT INFORMATION
  Report Type: Spontaneous
  Country: US (occurrence: US)
  Receive Date: 20210914
  Receipt Date: 20210914
  Transmission Date: 20211014
  Serious: Yes (Hospitalization)
  Sender: FDA-Public Use
  Company Number: None

PATIENT
  Sex: Female

DRUGS (9)
  1. RESTASIS [Concomitant]
     Active Substance: CYCLOSPORINE
     Dates: start: 20201029
  2. VITAMIN D3 [Concomitant]
     Active Substance: CHOLECALCIFEROL
     Dates: start: 20210816
  3. CARVEDILOL. [Concomitant]
     Active Substance: CARVEDILOL
     Dates: start: 20210420
  4. PHENTERMINE. [Concomitant]
     Active Substance: PHENTERMINE
     Dates: start: 20210614
  5. BUPRENORPHIN [Concomitant]
     Active Substance: BUPRENORPHINE
     Dates: start: 20210728
  6. AMLODIPINE [Concomitant]
     Active Substance: AMLODIPINE BESYLATE
     Dates: start: 20210601
  7. BUMETANIDE. [Concomitant]
     Active Substance: BUMETANIDE
     Dates: start: 20210413
  8. GENOTROPIN [Suspect]
     Active Substance: SOMATROPIN
     Indication: HYPOPITUITARISM
     Route: 058
     Dates: start: 20200427
  9. OXYCODONE AND ACETAMINOPHEN [Concomitant]
     Active Substance: ACETAMINOPHEN\OXYCODONE HYDROCHLORIDE
     Dates: start: 20210727

REACTIONS (1)
  - Oral surgery [None]
